FAERS Safety Report 5427329-2 (Version None)
Quarter: 2007Q3

REPORT INFORMATION
  Report Type: 
  Country: None (occurrence: None)
  Receive Date: 20070823
  Receipt Date: 20070809
  Transmission Date: 20080115
  Serious: Yes (Other)
  Sender: FDA-Public Use
  Company Number: PHBS2007GB13355

PATIENT
  Age: 25 Year
  Sex: Female

DRUGS (2)
  1. VISUDYNE [Suspect]
     Indication: CHOROIDAL NEOVASCULARISATION
  2. PREDNISOLONE [Concomitant]

REACTIONS (2)
  - SCAR [None]
  - VISUAL ACUITY REDUCED [None]
